FAERS Safety Report 9803047 (Version 1)
Quarter: 2014Q1

REPORT INFORMATION
  Report Type: Spontaneous
  Country: US (occurrence: None)
  Receive Date: 20140106
  Receipt Date: 20140106
  Transmission Date: 20141002
  Serious: Yes (Other)
  Sender: FDA-Public Use
  Company Number: None

PATIENT
  Age: 69 Year
  Sex: Male
  Weight: 78.02 kg

DRUGS (5)
  1. CIPROFLOXACIN [Suspect]
     Indication: PROSTATE INFECTION
     Route: 048
     Dates: start: 20131106, end: 20131117
  2. BABY ASPIRIN [Concomitant]
  3. BENICAR [Concomitant]
  4. HYDROCO/ACCETAMINOP [Concomitant]
  5. EQYATE ACETAMINOPHEN PM [Concomitant]

REACTIONS (5)
  - Arthralgia [None]
  - Gait disturbance [None]
  - Haemorrhoidal haemorrhage [None]
  - Prostatic haemorrhage [None]
  - Constipation [None]
